FAERS Safety Report 9391192 (Version 1)
Quarter: 2013Q3

REPORT INFORMATION
  Report Type: Spontaneous
  Country: US (occurrence: US)
  Receive Date: 20130709
  Receipt Date: 20130709
  Transmission Date: 20140515
  Serious: Yes (Other)
  Sender: FDA-Public Use
  Company Number: US-SANOFI-AVENTIS-2013SA067340

PATIENT
  Age: 87 Year
  Sex: Female

DRUGS (3)
  1. LANTUS SOLOSTAR [Suspect]
     Indication: TYPE 2 DIABETES MELLITUS
     Dosage: A FEW YEARS AGO DOSE:24 UNIT(S)
     Route: 051
  2. SOLOSTAR [Suspect]
     Indication: TYPE 2 DIABETES MELLITUS
  3. HUMALOG [Suspect]
     Dosage: DOSE: THREE TIMES A DAY; 18UNITS:15UNITS:18UNITS
     Route: 065

REACTIONS (2)
  - Macular degeneration [Unknown]
  - Visual impairment [Unknown]
